FAERS Safety Report 18821432 (Version 1)
Quarter: 2021Q1

REPORT INFORMATION
  Report Type: Spontaneous
  Country: US (occurrence: US)
  Receive Date: 20210201
  Receipt Date: 20210201
  Transmission Date: 20210419
  Serious: Yes (Hospitalization)
  Sender: FDA-Public Use
  Company Number: None

PATIENT
  Age: 74 Year
  Sex: Male
  Weight: 87 kg

DRUGS (1)
  1. HEPARIN (HEPARIN NA 500UNT/ML INJ) [Suspect]
     Active Substance: HEPARIN SODIUM
     Dates: start: 20200713, end: 20200715

REACTIONS (11)
  - Flank pain [None]
  - Acute myocardial infarction [None]
  - Sepsis [None]
  - Activated partial thromboplastin time prolonged [None]
  - Electrocardiogram ST segment abnormal [None]
  - Urinary tract infection [None]
  - Hypotension [None]
  - Chest pain [None]
  - Retroperitoneal haematoma [None]
  - Anticoagulation drug level above therapeutic [None]
  - Anaemia [None]

NARRATIVE: CASE EVENT DATE: 20200716
